FAERS Safety Report 4935901-9 (Version None)
Quarter: 2006Q1

REPORT INFORMATION
  Report Type: 
  Country: None (occurrence: None)
  Receive Date: 20060302
  Receipt Date: 20060208
  Transmission Date: 20060701
  Serious: Yes (Hospitalization, Other)
  Sender: FDA-Public Use
  Company Number: US200601005149

PATIENT
  Age: 73 Year
  Sex: Female
  Weight: 68.4932 kg

DRUGS (12)
  1. FORTEO [Suspect]
     Indication: OSTEOPOROSIS
     Dosage: 20 UG DAILY 1/D
     Dates: start: 20050623
  2. FORTEO PEN (FORTEO PEN) [Concomitant]
  3. ZETIA [Concomitant]
  4. FUROSEMIDE [Concomitant]
  5. LORAZEPAM [Concomitant]
  6. ZOLOFT [Concomitant]
  7. MIRTAZAPINE [Concomitant]
  8. WELLBUTRIN SR [Concomitant]
  9. DIGOXIN [Concomitant]
  10. LIPITOR [Concomitant]
  11. GLUCOVANCE [Concomitant]
  12. LORTAB [Concomitant]

REACTIONS (10)
  - ASTHENIA [None]
  - CEREBROVASCULAR ACCIDENT [None]
  - FALL [None]
  - LUNG ADENOCARCINOMA STAGE IV [None]
  - LYMPHADENOPATHY MEDIASTINAL [None]
  - METASTASES TO ADRENALS [None]
  - METASTASES TO CENTRAL NERVOUS SYSTEM [None]
  - MOTOR DYSFUNCTION [None]
  - NERVOUSNESS [None]
  - PHARMACEUTICAL PRODUCT COMPLAINT [None]
